FAERS Safety Report 26093896 (Version 2)
Quarter: 2025Q4

REPORT INFORMATION
  Report Type: Report from Study
  Country: ZA (occurrence: ZA)
  Receive Date: 20251126
  Receipt Date: 20251225
  Transmission Date: 20260118
  Serious: Yes (Other)
  Sender: ROCHE
  Company Number: ZA-ROCHE-3401818

PATIENT
  Age: 1 Year
  Sex: Female

DRUGS (6)
  1. ACTEMRA [Suspect]
     Active Substance: TOCILIZUMAB
     Indication: Still^s disease
     Route: 041
     Dates: start: 20230804
  2. ACTEMRA [Suspect]
     Active Substance: TOCILIZUMAB
     Dosage: NOW CHANGING TO 200MG EVERY 21 DAYS?LAST INFUSION WAS DONE ON 22/SEP/2023
     Route: 041
     Dates: start: 20230825
  3. ACTEMRA [Suspect]
     Active Substance: TOCILIZUMAB
     Route: 058
     Dates: start: 20231227
  4. METHOTREXATE [Concomitant]
     Active Substance: METHOTREXATE
  5. CYCLOSPORINE [Concomitant]
     Active Substance: CYCLOSPORINE
  6. ASPELONE [Concomitant]

REACTIONS (10)
  - Platelet count increased [Unknown]
  - Alanine aminotransferase increased [Unknown]
  - Blood creatinine decreased [Unknown]
  - Product use issue [Unknown]
  - Off label use [Unknown]
  - Cough [Unknown]
  - Rhinorrhoea [Unknown]
  - Aspartate aminotransferase increased [Unknown]
  - Rheumatoid arthritis [Unknown]
  - Aspartate aminotransferase increased [Unknown]

NARRATIVE: CASE EVENT DATE: 20231124
